FAERS Safety Report 9648658 (Version 2)
Quarter: 2013Q4

REPORT INFORMATION
  Report Type: Report from Study
  Country: US (occurrence: US)
  Receive Date: 20131028
  Receipt Date: 20131105
  Transmission Date: 20140711
  Serious: Yes (Death)
  Sender: FDA-Public Use
  Company Number: US-ABBVIE-13P-163-1161256-00

PATIENT
  Age: 39 Year
  Sex: Male

DRUGS (1)
  1. HUMIRA [Suspect]
     Indication: PRODUCT USED FOR UNKNOWN INDICATION
     Dates: start: 20121030, end: 20131023

REACTIONS (1)
  - Death [Fatal]
